FAERS Safety Report 6795703-8 (Version None)
Quarter: 2010Q2

REPORT INFORMATION
  Report Type: 
  Country: None (occurrence: None)
  Receive Date: 20100625
  Receipt Date: 20100605
  Transmission Date: 20101027
  Serious: Yes (Hospitalization, Other)
  Sender: FDA-Public Use
  Company Number: IT-BAYER-200716199GDS

PATIENT
  Age: 63 Year
  Sex: Female
  Weight: 52 kg

DRUGS (43)
  1. SORAFENIB [Suspect]
     Indication: NON-SMALL CELL LUNG CANCER
     Dosage: TOTAL DAILY DOSE: 800 MG
     Route: 048
     Dates: start: 20070920, end: 20071015
  2. CISPLATIN [Suspect]
     Indication: NON-SMALL CELL LUNG CANCER
     Dosage: UNIT DOSE: 75 MG/M2
     Route: 042
     Dates: start: 20070920, end: 20070920
  3. CISPLATIN [Suspect]
     Dosage: UNIT DOSE: 75 MG/M2
     Route: 042
     Dates: start: 20071011, end: 20071011
  4. GEMCITABINE HCL [Suspect]
     Indication: NON-SMALL CELL LUNG CANCER
     Dosage: UNIT DOSE: 1250 MG/M2
     Route: 042
     Dates: start: 20071011, end: 20071011
  5. GEMCITABINE HCL [Suspect]
     Dosage: UNIT DOSE: 1250 MG/M2
     Route: 042
     Dates: start: 20070927, end: 20070927
  6. GEMCITABINE HCL [Suspect]
     Dosage: UNIT DOSE: 1250 MG/M2
     Route: 042
     Dates: start: 20070920, end: 20070920
  7. LORAZEPAM [Concomitant]
     Indication: INSOMNIA
     Route: 048
     Dates: start: 20070913, end: 20071018
  8. RANIDIL [Concomitant]
     Indication: PROPHYLAXIS
     Route: 065
     Dates: start: 20071016, end: 20071018
  9. CERNEVIT-12 [Concomitant]
     Indication: VITAMIN SUPPLEMENTATION
     Dosage: 1 VIAL
     Route: 065
     Dates: start: 20071016, end: 20071018
  10. SOLDESAM [Concomitant]
     Indication: DECREASED APPETITE
     Route: 065
     Dates: start: 20071016, end: 20071018
  11. SOLDESAM [Concomitant]
     Route: 065
     Dates: start: 20070920, end: 20070921
  12. SOLDESAM [Concomitant]
     Route: 065
     Dates: start: 20070927, end: 20070927
  13. SOLDESAM [Concomitant]
     Route: 065
     Dates: start: 20070922, end: 20070922
  14. SOLDESAM [Concomitant]
     Route: 065
     Dates: start: 20071013, end: 20071013
  15. SOLDESAM [Concomitant]
     Route: 065
     Dates: start: 20071011, end: 20071012
  16. DIFLUCAN [Concomitant]
     Indication: MUCOSAL INFLAMMATION
     Route: 065
     Dates: start: 20071016, end: 20071017
  17. DIFLUCAN [Concomitant]
     Route: 065
     Dates: start: 20071026, end: 20071030
  18. ISOPURAMIN [Concomitant]
     Indication: DECREASED APPETITE
     Route: 065
     Dates: start: 20071017, end: 20071017
  19. ALBUMINA [Concomitant]
     Indication: DECREASED APPETITE
     Route: 065
     Dates: start: 20071017, end: 20071017
  20. ANTRA [Concomitant]
     Indication: PROPHYLAXIS
     Route: 065
     Dates: start: 20071018, end: 20071029
  21. ANTRA [Concomitant]
     Route: 065
     Dates: start: 20071030, end: 20071101
  22. FRAXIPARINA [Concomitant]
     Indication: THROMBOSIS PROPHYLAXIS
     Route: 065
     Dates: start: 20071018
  23. MERREM [Concomitant]
     Indication: INFECTION PROPHYLAXIS
     Route: 065
     Dates: start: 20071018, end: 20071018
  24. MERREM [Concomitant]
     Route: 065
     Dates: start: 20071025, end: 20071030
  25. TAZOCIN [Concomitant]
     Indication: INFECTION PROPHYLAXIS
     Route: 065
     Dates: start: 20071019, end: 20071024
  26. LEVOXACIN [Concomitant]
     Indication: INFECTION PROPHYLAXIS
     Route: 065
     Dates: start: 20071019, end: 20071024
  27. GRANULOKINE [Concomitant]
     Indication: NEUTROPENIA
     Dosage: 1 VIAL
     Route: 065
     Dates: start: 20071019, end: 20071023
  28. GLUCOSE SOLUTION 5% [Concomitant]
     Indication: FATIGUE
     Route: 065
     Dates: start: 20071016, end: 20071102
  29. ELECTROLYTIC SOLUTION [Concomitant]
     Indication: FATIGUE
     Route: 065
     Dates: start: 20071016, end: 20071102
  30. SODIUM CHLORIDE [Concomitant]
     Indication: DEHYDRATION
     Route: 065
     Dates: start: 20071016, end: 20071102
  31. SODIUM CHLORIDE [Concomitant]
     Route: 065
     Dates: start: 20070920, end: 20070920
  32. SODIUM CHLORIDE [Concomitant]
     Route: 065
     Dates: start: 20071011, end: 20071011
  33. POTASSIUM CHLORIDE [Concomitant]
     Indication: DEHYDRATION
     Route: 065
     Dates: start: 20070920, end: 20070920
  34. POTASSIUM CHLORIDE [Concomitant]
     Route: 065
     Dates: start: 20071011, end: 20071011
  35. MAGNESIUM SULFATE [Concomitant]
     Indication: DEHYDRATION
     Route: 065
     Dates: start: 20070920, end: 20070920
  36. MAGNESIUM SULFATE [Concomitant]
     Route: 065
     Dates: start: 20071011, end: 20071011
  37. LASIX [Concomitant]
     Indication: DIURETIC THERAPY
     Route: 065
     Dates: start: 20070920, end: 20070920
  38. LASIX [Concomitant]
     Route: 065
     Dates: start: 20071011, end: 20071011
  39. KYTRIL [Concomitant]
     Indication: PROPHYLAXIS OF NAUSEA AND VOMITING
     Route: 065
     Dates: start: 20070920, end: 20070920
  40. KYTRIL [Concomitant]
     Route: 065
     Dates: start: 20071011, end: 20071011
  41. PLASIL [Concomitant]
     Indication: PROPHYLAXIS OF NAUSEA AND VOMITING
     Route: 065
     Dates: start: 20070927, end: 20070927
  42. EMEND [Concomitant]
     Indication: PROPHYLAXIS OF NAUSEA AND VOMITING
     Route: 065
     Dates: start: 20071011, end: 20071011
  43. EMEND [Concomitant]
     Route: 065
     Dates: start: 20071012, end: 20071013

REACTIONS (2)
  - ACUTE ABDOMEN [None]
  - GASTROINTESTINAL PERFORATION [None]
